FAERS Safety Report 4286491-8 (Version None)
Quarter: 2004Q1

REPORT INFORMATION
  Report Type: 
  Country: None (occurrence: None)
  Receive Date: 20040205
  Receipt Date: 20040205
  Transmission Date: 20041129
  Serious: Yes (Hospitalization)
  Sender: FDA-Public Use
  Company Number: None

PATIENT
  Age: 53 Year
  Sex: Male
  Weight: 86.4 kg

DRUGS (6)
  1. VALPROIC ACID [Suspect]
     Indication: BIPOLAR DISORDER
     Dosage: 1 GM Q HS
  2. QUETIAPINE [Suspect]
     Dosage: 75 MG Q HS
  3. ATENOLOL [Concomitant]
  4. CLONAZEPAM [Concomitant]
  5. SERTRALINE HCL [Concomitant]
  6. ZOLPIDEM TARTRATE [Concomitant]

REACTIONS (5)
  - AMMONIA INCREASED [None]
  - LETHARGY [None]
  - LIVER FUNCTION TEST ABNORMAL [None]
  - MEMORY IMPAIRMENT [None]
  - MENTAL STATUS CHANGES [None]
